FAERS Safety Report 9706761 (Version 4)
Quarter: 2014Q1

REPORT INFORMATION
  Report Type: Spontaneous
  Country: JP (occurrence: JP)
  Receive Date: 20131125
  Receipt Date: 20140320
  Transmission Date: 20141002
  Serious: Yes (Hospitalization, Other)
  Sender: FDA-Public Use
  Company Number: PHHY2013JP103572

PATIENT
  Age: 71 Year
  Sex: Male
  Weight: 57 kg

DRUGS (10)
  1. AFINITOR [Suspect]
     Indication: PANCREATIC NEUROENDOCRINE TUMOUR
     Dosage: 10 MG, DAILY
     Route: 048
     Dates: start: 20130828, end: 20130903
  2. AFINITOR [Suspect]
     Dosage: 10 MG, QD
     Route: 048
     Dates: start: 20130929, end: 20131011
  3. INSULIN [Concomitant]
  4. PARIET [Concomitant]
     Route: 048
  5. BAYASPIRIN [Concomitant]
     Indication: TRANSIENT ISCHAEMIC ATTACK
     Dosage: 100 MG
     Route: 048
     Dates: start: 20090520
  6. LANSOPRAZOLE [Concomitant]
     Indication: PROPHYLAXIS
     Dosage: 15 MG
     Route: 048
     Dates: start: 20090520
  7. URSODEOXYCHOLIC ACID [Concomitant]
     Indication: PROPHYLAXIS
     Dosage: 600 MG
     Route: 048
     Dates: start: 20090520
  8. MOSAPRIDE CITRATE [Concomitant]
     Indication: PROPHYLAXIS
     Dosage: 15 MG
     Route: 048
     Dates: start: 20090520
  9. MAGMITT [Concomitant]
     Indication: PROPHYLAXIS
     Dosage: 660 MG
     Route: 048
     Dates: start: 20090520
  10. NOVORAPID [Concomitant]
     Indication: DIABETES MELLITUS
     Dates: start: 20090520

REACTIONS (5)
  - Hepatic steatosis [Unknown]
  - Ascites [Recovering/Resolving]
  - Hepatic cirrhosis [Not Recovered/Not Resolved]
  - Neutropenia [Recovered/Resolved]
  - Platelet count decreased [Recovered/Resolved]
